FAERS Safety Report 8489066-X (Version None)
Quarter: 2012Q3

REPORT INFORMATION
  Report Type: 
  Country: None (occurrence: None)
  Receive Date: 20120705
  Receipt Date: 20120627
  Transmission Date: 20120928
  Serious: Yes (Other)
  Sender: FDA-Public Use
  Company Number: JP-SANOFI-AVENTIS-2012SA046346

PATIENT

DRUGS (2)
  1. DOCETAXEL [Suspect]
     Dosage: CONCOMITANT CHEMOTHERAPY
     Route: 065
  2. THERAPEUTIC RADIOPHARMACEUTICALS [Concomitant]
     Dosage: AT A DOSE OF 2 GY/SESSION

REACTIONS (1)
  - SHOCK [None]
